FAERS Safety Report 15616746 (Version 1)
Quarter: 2018Q4

REPORT INFORMATION
  Report Type: Spontaneous
  Country: US (occurrence: US)
  Receive Date: 20181109
  Receipt Date: 20181109
  Transmission Date: 20190205
  Serious: No
  Sender: FDA-Public Use
  Company Number: None

PATIENT
  Age: 51 Year
  Sex: Male

DRUGS (2)
  1. TECFIDERA [Suspect]
     Active Substance: DIMETHYL FUMARATE
  2. DALFAMPRIDINE 10MG ER TAB [Suspect]
     Active Substance: DALFAMPRIDINE
     Dates: start: 201808

REACTIONS (5)
  - Gait disturbance [None]
  - Amnesia [None]
  - Narcolepsy [None]
  - Pollakiuria [None]
  - Cognitive disorder [None]

NARRATIVE: CASE EVENT DATE: 20181107
